FAERS Safety Report 16651476 (Version 3)
Quarter: 2019Q3

REPORT INFORMATION
  Report Type: Spontaneous
  Country: GB (occurrence: GB)
  Receive Date: 20190731
  Receipt Date: 20190903
  Transmission Date: 20191004
  Serious: Yes (Other)
  Sender: FDA-Public Use
  Company Number: GB-JNJFOC-20190732207

PATIENT
  Sex: Male

DRUGS (1)
  1. DUROGESIC D TRANS [Suspect]
     Active Substance: FENTANYL
     Indication: PRODUCT USED FOR UNKNOWN INDICATION
     Dosage: 25 PLUS 12.5 MICRO
     Route: 062

REACTIONS (3)
  - Suicidal ideation [Unknown]
  - Pain [Unknown]
  - Product adhesion issue [Unknown]
